FAERS Safety Report 13165366 (Version 1)
Quarter: 2017Q1

REPORT INFORMATION
  Report Type: Spontaneous
  Country: BR (occurrence: BR)
  Receive Date: 20170131
  Receipt Date: 20170131
  Transmission Date: 20170428
  Serious: Yes (Hospitalization)
  Sender: FDA-Public Use
  Company Number: BR-BAXTER-2017BAX002978

PATIENT
  Age: 82 Year
  Sex: Female
  Weight: 68 kg

DRUGS (10)
  1. DIPIRONE [Suspect]
     Active Substance: METAMIZOLE SODIUM
     Indication: PRODUCT USED FOR UNKNOWN INDICATION
     Dosage: 1 AMPOULE
     Route: 042
     Dates: start: 20160917, end: 20160917
  2. OMEPRAZOLE. [Suspect]
     Active Substance: OMEPRAZOLE
     Indication: PRODUCT USED FOR UNKNOWN INDICATION
     Route: 042
     Dates: start: 20160917, end: 20160917
  3. ANTAK [Suspect]
     Active Substance: RANITIDINE HYDROCHLORIDE
     Indication: PRODUCT USED FOR UNKNOWN INDICATION
     Route: 042
     Dates: start: 20160917, end: 20160917
  4. ESCOPOLAMINA/N-BUTIL [Suspect]
     Active Substance: BUTYLSCOPOLAMINE BROMIDE
     Indication: PRODUCT USED FOR UNKNOWN INDICATION
     Dosage: STRENGTH OF N-BUTIL 20MG, 1 AMPOULE
     Route: 042
     Dates: start: 20160917, end: 20160917
  5. BORTEZOMIBE [Suspect]
     Active Substance: BORTEZOMIB
     Indication: CHEMOTHERAPY
     Dosage: CYCLE 1 DAY 15, ONLY DOSE
     Route: 058
     Dates: start: 20160916, end: 20160916
  6. DEXAMETHASONE. [Suspect]
     Active Substance: DEXAMETHASONE
     Indication: PRODUCT USED FOR UNKNOWN INDICATION
     Dosage: 1 AMPOULE
     Route: 042
     Dates: start: 20160917, end: 20160917
  7. GENUXAL [Suspect]
     Active Substance: CYCLOPHOSPHAMIDE
     Indication: CHEMOTHERAPY
     Dosage: CYCLE 1 DAY 15, ONLY DOSE
     Route: 048
     Dates: start: 20160916, end: 20160916
  8. DECADRON [Suspect]
     Active Substance: DEXAMETHASONE
     Indication: PRODUCT USED FOR UNKNOWN INDICATION
     Dosage: CYCLE 1 DAY 15, ONLY DOSE
     Route: 048
     Dates: start: 20160916, end: 20160916
  9. ZOFRAN [Suspect]
     Active Substance: ONDANSETRON HYDROCHLORIDE
     Indication: PRODUCT USED FOR UNKNOWN INDICATION
     Dosage: CYCLE 1 DAY 15, ONLY DOSE
     Route: 048
     Dates: start: 20160916, end: 20160916
  10. DIMENIDRINATO/B6VITAMIN/GLUCOSE/FRUCTOSE [Suspect]
     Active Substance: DEXTROSE\DIMENHYDRINATE\FRUCTOSE\PYRIDOXINE
     Indication: PRODUCT USED FOR UNKNOWN INDICATION
     Dosage: 1 AMPOULE
     Route: 042
     Dates: start: 20160917, end: 20160917

REACTIONS (3)
  - Abdominal pain upper [Recovered/Resolved]
  - Ileus paralytic [Recovered/Resolved]
  - Fatigue [Recovered/Resolved]

NARRATIVE: CASE EVENT DATE: 20160917
